FAERS Safety Report 10089278 (Version 1)
Quarter: 2014Q2

REPORT INFORMATION
  Report Type: Spontaneous
  Country: CY (occurrence: CY)
  Receive Date: 20140421
  Receipt Date: 20140421
  Transmission Date: 20141212
  Serious: Yes (Other)
  Sender: FDA-Public Use
  Company Number: PHHY2014CY044802

PATIENT
  Age: 76 Year
  Sex: Female

DRUGS (3)
  1. EVEROLIMUS [Suspect]
     Indication: BREAST CANCER METASTATIC
     Dosage: 10 MG, DAILY
     Route: 048
     Dates: start: 20131129, end: 20140307
  2. EVEROLIMUS [Suspect]
     Dosage: 10 MG, DAILY
     Route: 048
     Dates: start: 20140317, end: 20140404
  3. EXEMESTANE [Concomitant]
     Indication: BREAST CANCER METASTATIC
     Dosage: 25 MG, DAILY
     Dates: start: 20131129

REACTIONS (1)
  - Haemoptysis [Recovered/Resolved]
